FAERS Safety Report 7558826-1 (Version None)
Quarter: 2011Q2

REPORT INFORMATION
  Report Type: 
  Country: None (occurrence: None)
  Receive Date: 20110621
  Receipt Date: 20110607
  Transmission Date: 20111010
  Serious: Yes (Hospitalization)
  Sender: FDA-Public Use
  Company Number: US-ROCHE-783132

PATIENT
  Sex: Female

DRUGS (4)
  1. DOCETAXEL [Suspect]
     Indication: OVARIAN CANCER
     Dosage: FREQUENCY: OVER ONE HOUR ON DAY ONE.
     Route: 042
     Dates: start: 20100329
  2. BEVACIZUMAB [Suspect]
     Indication: OVARIAN CANCER
     Dosage: FREQUENCY: INTRAVENOUS OVER 30-90 MIN ON DAY ONE
     Route: 042
     Dates: start: 20100329
  3. CARBOPLATIN [Suspect]
     Indication: OVARIAN CANCER
     Dosage: AUC 5 INTRAVENOUS OVER 30 MINUTES ON DAY ONE.
     Route: 042
     Dates: start: 20100329
  4. PACLITAXEL [Suspect]
     Indication: OVARIAN CANCER
     Dosage: FREQUENCY: OVER 3 HOURSON DAY ONE.
     Route: 042
     Dates: start: 20100329

REACTIONS (5)
  - HYPERSENSITIVITY [None]
  - THROMBOSIS [None]
  - SMALL INTESTINAL OBSTRUCTION [None]
  - PROCEDURAL COMPLICATION [None]
  - WOUND DEHISCENCE [None]
